FAERS Safety Report 21158026 (Version 1)
Quarter: 2022Q3

REPORT INFORMATION
  Report Type: Other
  Country: CA (occurrence: CA)
  Receive Date: 20220801
  Receipt Date: 20220801
  Transmission Date: 20221027
  Serious: Yes (Hospitalization, Other)
  Sender: FDA-Public Use
  Company Number: CA-002147023-PHHY2019CA102821

PATIENT
  Age: 41 Year
  Sex: Female
  Weight: 87 kg

DRUGS (27)
  1. XOLAIR [Suspect]
     Active Substance: OMALIZUMAB
     Indication: Chronic spontaneous urticaria
     Route: 058
     Dates: start: 20190730
  2. XOLAIR [Suspect]
     Active Substance: OMALIZUMAB
     Indication: Asthma
     Route: 058
     Dates: start: 20190826
  3. XOLAIR [Suspect]
     Active Substance: OMALIZUMAB
     Route: 058
     Dates: start: 20190924
  4. XOLAIR [Suspect]
     Active Substance: OMALIZUMAB
     Route: 058
     Dates: start: 20200402
  5. XOLAIR [Suspect]
     Active Substance: OMALIZUMAB
     Route: 058
     Dates: start: 20200430
  6. XOLAIR [Suspect]
     Active Substance: OMALIZUMAB
     Route: 058
     Dates: start: 201910
  7. XOLAIR [Suspect]
     Active Substance: OMALIZUMAB
     Route: 058
     Dates: start: 20200304
  8. XOLAIR [Suspect]
     Active Substance: OMALIZUMAB
     Route: 058
  9. CYCLOSPORINE [Suspect]
     Active Substance: CYCLOSPORINE
     Indication: Chronic spontaneous urticaria
     Route: 048
     Dates: start: 201201
  10. CETIRIZINE HYDROCHLORIDE [Suspect]
     Active Substance: CETIRIZINE HYDROCHLORIDE
     Indication: Product used for unknown indication
     Dosage: UNK
     Route: 065
     Dates: start: 2011
  11. CHLORASEPTIC SORE THROAT [Suspect]
     Active Substance: PHENOL
     Indication: Product used for unknown indication
     Dosage: SORE THROAT SPRAY
     Route: 065
  12. SYMBICORT [Suspect]
     Active Substance: BUDESONIDE\FORMOTEROL FUMARATE DIHYDRATE
     Indication: Product used for unknown indication
     Route: 055
     Dates: start: 201805
  13. VENTOLIN [Suspect]
     Active Substance: ALBUTEROL SULFATE
     Indication: Product used for unknown indication
     Route: 065
  14. BENADRYL [Suspect]
     Active Substance: DIPHENHYDRAMINE HYDROCHLORIDE
     Indication: Product used for unknown indication
     Route: 065
     Dates: start: 201103
  15. CANDESARTAN [Suspect]
     Active Substance: CANDESARTAN
     Indication: Product used for unknown indication
     Dosage: 4 MG, BID
     Route: 065
  16. PERCOCET [Suspect]
     Active Substance: ACETAMINOPHEN\OXYCODONE HYDROCHLORIDE
     Indication: Product used for unknown indication
     Dosage: UNK
     Route: 065
  17. PERCOCET [Suspect]
     Active Substance: ACETAMINOPHEN\OXYCODONE HYDROCHLORIDE
     Indication: Product used for unknown indication
     Dosage: 3 DOSAGE FORM, QD
     Route: 048
     Dates: start: 2008
  18. PREMARIN [Suspect]
     Active Substance: ESTROGENS, CONJUGATED
     Indication: Product used for unknown indication
     Dosage: UNK
     Route: 065
  19. PREMARIN [Suspect]
     Active Substance: ESTROGENS, CONJUGATED
     Indication: Product used for unknown indication
     Dosage: 1 DOSAGE FORM, QD
     Route: 048
     Dates: start: 1998
  20. SINGULAIR [Concomitant]
     Active Substance: MONTELUKAST SODIUM
     Indication: Hypersensitivity
     Dosage: 10 MG, QD
     Route: 065
     Dates: start: 2012
  21. CLARITIN [Concomitant]
     Active Substance: LORATADINE
     Indication: Product used for unknown indication
     Dosage: 10 MG, UNK
     Route: 065
     Dates: start: 2012
  22. PREDNISONE [Concomitant]
     Active Substance: PREDNISONE
     Dosage: AS REQUIRED
     Route: 065
     Dates: start: 2012
  23. CETIRIZINE HYDROCHLORIDE [Concomitant]
     Active Substance: CETIRIZINE HYDROCHLORIDE
     Indication: Product used for unknown indication
     Route: 065
     Dates: start: 2012
  24. ALBUTEROL [Concomitant]
     Active Substance: ALBUTEROL
     Indication: Product used for unknown indication
     Route: 055
     Dates: start: 201805
  25. BECLOMETHASONE [Concomitant]
     Active Substance: BECLOMETHASONE
     Indication: Product used for unknown indication
     Route: 055
     Dates: start: 201805
  26. PERCOCET [Concomitant]
     Active Substance: ACETAMINOPHEN\OXYCODONE HYDROCHLORIDE
     Indication: Product used for unknown indication
     Dosage: 3 DF, QD
     Route: 048
     Dates: start: 2008
  27. PREMARIN [Concomitant]
     Active Substance: ESTROGENS, CONJUGATED
     Indication: Product used for unknown indication
     Route: 048
     Dates: start: 1998

REACTIONS (61)
  - Brain oedema [Unknown]
  - Aneurysm [Unknown]
  - Arthritis [Unknown]
  - Cardiomegaly [Unknown]
  - Kidney enlargement [Unknown]
  - Gastritis [Unknown]
  - Renal disorder [Unknown]
  - Angioedema [Unknown]
  - Urticaria [Not Recovered/Not Resolved]
  - Urticaria pressure [Unknown]
  - Pruritus [Unknown]
  - Urticaria thermal [Unknown]
  - Intracranial pressure increased [Unknown]
  - Blindness [Unknown]
  - Hypertension [Unknown]
  - Blood pressure increased [Not Recovered/Not Resolved]
  - Malaise [Unknown]
  - Cardiac disorder [Unknown]
  - Dyspnoea [Unknown]
  - Feeling abnormal [Unknown]
  - Pain [Unknown]
  - Illness [Unknown]
  - Peripheral swelling [Unknown]
  - Joint swelling [Unknown]
  - Arthralgia [Unknown]
  - Injection site scab [Not Recovered/Not Resolved]
  - Diarrhoea [Recovering/Resolving]
  - Vomiting [Recovering/Resolving]
  - Pyrexia [Recovering/Resolving]
  - Asthenia [Unknown]
  - Migraine without aura [Unknown]
  - Musculoskeletal discomfort [Unknown]
  - Migraine [Unknown]
  - Eye swelling [Unknown]
  - Chills [Recovering/Resolving]
  - Temperature intolerance [Unknown]
  - Oxygen saturation decreased [Unknown]
  - Drug hypersensitivity [Unknown]
  - Streptococcal infection [Unknown]
  - Lung disorder [Recovered/Resolved]
  - Bone pain [Unknown]
  - Impaired healing [Not Recovered/Not Resolved]
  - Fatigue [Unknown]
  - Cough [Unknown]
  - Weight increased [Unknown]
  - Pain in extremity [Unknown]
  - Arthropod bite [Not Recovered/Not Resolved]
  - Nausea [Unknown]
  - Symptom recurrence [Unknown]
  - Myalgia [Unknown]
  - Headache [Unknown]
  - Product dose omission issue [Unknown]
  - Chronic spontaneous urticaria [Unknown]
  - Drug ineffective [Unknown]
  - Product prescribing error [Unknown]
  - Therapeutic response decreased [Unknown]
  - Inflammation [Unknown]
  - Wrong technique in product usage process [Unknown]
  - Incorrect dose administered [Unknown]
  - Erythema [Unknown]
  - Swelling [Unknown]

NARRATIVE: CASE EVENT DATE: 20190730
